FAERS Safety Report 4653771-3 (Version None)
Quarter: 2005Q2

REPORT INFORMATION
  Report Type: 
  Country: None (occurrence: None)
  Receive Date: 20050504
  Receipt Date: 20050421
  Transmission Date: 20051028
  Serious: Yes (Hospitalization, Other)
  Sender: FDA-Public Use
  Company Number: 2005064132

PATIENT
  Age: 76 Year
  Sex: Female

DRUGS (8)
  1. CELEBREX [Suspect]
     Indication: ARTHRITIS
     Dosage: 400 MG (200 MG, 2 IN 1 D), ORAL
     Route: 048
  2. SULINDAC [Suspect]
     Indication: ARTHRITIS
     Dates: start: 20050101, end: 20050101
  3. LOVASTATIN [Concomitant]
  4. DILTAZEM HYDROCHLORIDE (DILTAZEM HYDROCHLORIDE) [Concomitant]
  5. GLUCOSAMIDE (GLUCOSAMIDE) [Concomitant]
  6. VITAMINS (VITAMINS) [Concomitant]
  7. ASPIRIN [Concomitant]
  8. RALOXIFENE HCL [Concomitant]

REACTIONS (3)
  - CORONARY ARTERY OCCLUSION [None]
  - DRUG INEFFECTIVE [None]
  - SOMNOLENCE [None]
